FAERS Safety Report 4962946-5 (Version None)
Quarter: 2006Q1

REPORT INFORMATION
  Report Type: 
  Country: None (occurrence: None)
  Receive Date: 20060331
  Receipt Date: 20060314
  Transmission Date: 20060701
  Serious: Yes (Hospitalization)
  Sender: FDA-Public Use
  Company Number: 34257

PATIENT
  Age: 77 Year
  Sex: Female

DRUGS (3)
  1. AZOPT [Suspect]
     Dosage: OPHT
     Route: 047
     Dates: start: 20051001
  2. INFLUENZA VIRUS VACCINE POLYVALENT [Suspect]
     Dosage: IM
     Route: 030
     Dates: start: 20051030, end: 20051030
  3. ENDOTELON [Suspect]
     Dosage: NI
     Dates: end: 20051207

REACTIONS (1)
  - LEUKOCYTOCLASTIC VASCULITIS [None]
